FAERS Safety Report 16241127 (Version 1)
Quarter: 2019Q2

REPORT INFORMATION
  Report Type: Spontaneous
  Country: US (occurrence: US)
  Receive Date: 20190425
  Receipt Date: 20190425
  Transmission Date: 20190711
  Serious: No
  Sender: FDA-Public Use
  Company Number: US-GLAXOSMITHKLINE-US2019071684

PATIENT
  Age: 37 Year
  Sex: Female

DRUGS (2)
  1. ALLI [Suspect]
     Active Substance: ORLISTAT
     Indication: WEIGHT CONTROL
     Dosage: UNK, (1 CAPSULE) TID
     Route: 048
     Dates: start: 20190201
  2. ALLI [Suspect]
     Active Substance: ORLISTAT
     Dosage: UNK, (1 CAPSULE) TID
     Route: 048
     Dates: start: 20190201

REACTIONS (1)
  - Drug ineffective [Unknown]
